FAERS Safety Report 13342456 (Version 2)
Quarter: 2017Q2

REPORT INFORMATION
  Report Type: Report from Study
  Country: FR (occurrence: FR)
  Receive Date: 20170316
  Receipt Date: 20170516
  Transmission Date: 20170830
  Serious: Yes (Hospitalization)
  Sender: FDA-Public Use
  Company Number: FR-JNJFOC-20170222237

PATIENT
  Age: 36 Year
  Sex: Male
  Weight: 65 kg

DRUGS (1)
  1. GOLIMUMAB [Suspect]
     Active Substance: GOLIMUMAB
     Indication: ANKYLOSING SPONDYLITIS
     Route: 058
     Dates: start: 20160303, end: 20170103

REACTIONS (1)
  - Furuncle [Recovering/Resolving]

NARRATIVE: CASE EVENT DATE: 20170105
